FAERS Safety Report 8196905-9 (Version None)
Quarter: 2012Q1

REPORT INFORMATION
  Report Type: 
  Country: None (occurrence: None)
  Receive Date: 20120309
  Receipt Date: 20120307
  Transmission Date: 20120608
  Serious: No
  Sender: FDA-Public Use
  Company Number: US-PFIZER INC-2012061565

PATIENT
  Sex: Male
  Weight: 179 kg

DRUGS (1)
  1. IBUPROFEN (ADVIL) [Suspect]
     Dosage: 400 MG, 1X/DAY (TWO 200MG ORAL LIQUIGELS ONCE A DAY)
     Route: 048
     Dates: start: 20120305, end: 20120305

REACTIONS (3)
  - ORAL DISCOMFORT [None]
  - THROAT IRRITATION [None]
  - CHEST PAIN [None]
